FAERS Safety Report 6635646-3 (Version None)
Quarter: 2010Q1

REPORT INFORMATION
  Report Type: 
  Country: None (occurrence: None)
  Receive Date: 20100315
  Receipt Date: 20100303
  Transmission Date: 20100710
  Serious: Yes (Other)
  Sender: FDA-Public Use
  Company Number: US-AMGEN-KDL396941

PATIENT
  Sex: Male

DRUGS (4)
  1. NPLATE [Suspect]
     Indication: IDIOPATHIC THROMBOCYTOPENIC PURPURA
     Dates: start: 20081021, end: 20091030
  2. CORTICOSTEROIDS [Concomitant]
     Dates: start: 20081004
  3. IMMU-G [Concomitant]
     Route: 042
     Dates: start: 20081008
  4. INTERFERON ALFA [Concomitant]
     Dates: start: 20081028

REACTIONS (4)
  - ANAEMIA [None]
  - BIOPSY BONE MARROW ABNORMAL [None]
  - THERAPEUTIC RESPONSE DECREASED [None]
  - THROMBOCYTOPENIA [None]
